FAERS Safety Report 4861994-3 (Version None)
Quarter: 2005Q4

REPORT INFORMATION
  Report Type: 
  Country: None (occurrence: None)
  Receive Date: 20051129
  Receipt Date: 20050906
  Transmission Date: 20060501
  Serious: Yes (Life-Threatening, Disabling)
  Sender: FDA-Public Use
  Company Number: WAES 0509USA00499

PATIENT
  Age: 64 Year
  Sex: Male

DRUGS (5)
  1. VYTORIN [Suspect]
     Indication: BLOOD CHOLESTEROL INCREASED
     Dosage: 10-10 MG/DAILY/PO
     Route: 048
     Dates: start: 20050317, end: 20050901
  2. ECOTRIN [Concomitant]
  3. NORVASC [Concomitant]
  4. PLAVIX [Concomitant]
  5. TOPROL-XL [Concomitant]

REACTIONS (1)
  - MYALGIA [None]
